FAERS Safety Report 6189629-0 (Version None)
Quarter: 2009Q2

REPORT INFORMATION
  Report Type: 
  Country: None (occurrence: None)
  Receive Date: 20090514
  Receipt Date: 20090505
  Transmission Date: 20091009
  Serious: Yes (Hospitalization)
  Sender: FDA-Public Use
  Company Number: US-PFIZER INC-2009185560

PATIENT
  Age: 23 Year
  Sex: Male
  Weight: 81.6 kg

DRUGS (2)
  1. ZITHROMAX [Suspect]
     Indication: SEXUALLY TRANSMITTED DISEASE
     Dosage: 1 G, 1X/DAY
     Route: 030
     Dates: start: 20090318, end: 20090318
  2. ROCEPHIN [Concomitant]
     Dosage: 250 MG
     Route: 030
     Dates: start: 20090318, end: 20090318

REACTIONS (6)
  - INCORRECT ROUTE OF DRUG ADMINISTRATION [None]
  - JOINT RANGE OF MOTION DECREASED [None]
  - PAIN [None]
  - SENSATION OF HEAVINESS [None]
  - SWELLING [None]
  - TENDERNESS [None]
